FAERS Safety Report 22321206 (Version 1)
Quarter: 2023Q2

REPORT INFORMATION
  Report Type: Spontaneous
  Country: TH (occurrence: TH)
  Receive Date: 20230515
  Receipt Date: 20230515
  Transmission Date: 20230722
  Serious: Yes (Hospitalization, Other)
  Sender: FDA-Public Use
  Company Number: TH-ViiV Healthcare Limited-TH2023GSK064336

PATIENT

DRUGS (8)
  1. ZIDOVUDINE [Suspect]
     Active Substance: ZIDOVUDINE
     Indication: HIV infection
     Dosage: UNK
  2. LAMIVUDINE [Concomitant]
     Active Substance: LAMIVUDINE
     Indication: HIV infection
     Dosage: UNK
  3. STAVUDINE [Concomitant]
     Active Substance: STAVUDINE
     Indication: HIV infection
     Dosage: UNK
  4. EFAVIRENZ [Concomitant]
     Active Substance: EFAVIRENZ
     Indication: HIV infection
     Dosage: UNK
  5. RISPERIDONE [Concomitant]
     Active Substance: RISPERIDONE
     Indication: Schizophrenia
     Dosage: 6 MG, QD
     Dates: start: 2014
  6. HALOPERIDOL DECANOATE [Concomitant]
     Active Substance: HALOPERIDOL DECANOATE
     Indication: Schizophrenia
     Dosage: 100 MG, MO
     Dates: start: 2014
  7. FLUPHENAZINE [Concomitant]
     Active Substance: FLUPHENAZINE
     Indication: Schizophrenia
     Dosage: 50 MG, MO
  8. OMEPRAZOLE [Concomitant]
     Active Substance: OMEPRAZOLE
     Indication: Dyspepsia
     Dosage: UNK

REACTIONS (10)
  - Anaemia [Recovered/Resolved]
  - Aplasia pure red cell [Unknown]
  - Schizophrenia [Recovered/Resolved]
  - Slow response to stimuli [Unknown]
  - Psychotic disorder [Recovered/Resolved]
  - Fatigue [Unknown]
  - Headache [Unknown]
  - Temperature intolerance [Unknown]
  - Irritability [Recovered/Resolved]
  - Somatic symptom disorder [Recovered/Resolved]
